FAERS Safety Report 25905972 (Version 1)
Quarter: 2025Q4

REPORT INFORMATION
  Report Type: Spontaneous
  Country: US (occurrence: None)
  Receive Date: 20251009
  Receipt Date: 20251009
  Transmission Date: 20260117
  Serious: Yes (Hospitalization)
  Sender: FDA-CTU
  Company Number: None

PATIENT
  Sex: Male

DRUGS (11)
  1. PULMOZYME [Suspect]
     Active Substance: DORNASE ALFA
     Indication: Cystic fibrosis
     Dosage: INHALE  2.5 MG VIA NEBULIZER ONCE DAILY
     Route: 055
     Dates: start: 20150401
  2. ADVAIR DISKU AER [Concomitant]
  3. ALLOPURINOL [Concomitant]
     Active Substance: ALLOPURINOL
  4. ALTERA [Concomitant]
  5. AZITHROMYCIN [Concomitant]
     Active Substance: AZITHROMYCIN
  6. BASAGLAR [Concomitant]
     Active Substance: INSULIN GLARGINE
  7. CALCITRIOL [Concomitant]
     Active Substance: CALCITRIOL
  8. CARVEDILOL [Concomitant]
     Active Substance: CARVEDILOL
  9. CAYSTON [Concomitant]
     Active Substance: AZTREONAM
  10. FUROSEMIDE [Concomitant]
     Active Substance: FUROSEMIDE
  11. IPRATROPIUM SOL [Concomitant]

REACTIONS (3)
  - Dyspnoea [None]
  - Wheezing [None]
  - Exercise tolerance decreased [None]
